FAERS Safety Report 7414801-9 (Version None)
Quarter: 2011Q2

REPORT INFORMATION
  Report Type: 
  Country: None (occurrence: None)
  Receive Date: 20110414
  Receipt Date: 20100709
  Transmission Date: 20111010
  Serious: No
  Sender: FDA-Public Use
  Company Number: A0869506A

PATIENT
  Age: 78 Year
  Sex: Female

DRUGS (1)
  1. LUXIQ [Suspect]
     Dosage: 1APP SINGLE DOSE
     Route: 061
     Dates: start: 20100703

REACTIONS (2)
  - RASH [None]
  - HYPERSENSITIVITY [None]
